FAERS Safety Report 23879803 (Version 2)
Quarter: 2024Q2

REPORT INFORMATION
  Report Type: Spontaneous
  Country: DE (occurrence: DE)
  Receive Date: 20240521
  Receipt Date: 20240624
  Transmission Date: 20240716
  Serious: Yes (Other)
  Sender: FDA-Public Use
  Company Number: DE-TEVA-VS-3194953

PATIENT
  Age: 49 Year
  Sex: Female
  Weight: 61 kg

DRUGS (9)
  1. TRANEXAMIC ACID [Interacting]
     Active Substance: TRANEXAMIC ACID
     Indication: Product used for unknown indication
     Dosage: UNK
     Route: 065
  2. ERYTHROMYCIN [Interacting]
     Active Substance: ERYTHROMYCIN
     Indication: Product used for unknown indication
     Dosage: UNK
     Route: 065
  3. PANTOPRAZOLE [Interacting]
     Active Substance: PANTOPRAZOLE
     Indication: Product used for unknown indication
     Dosage: UNK
     Route: 065
  4. OMEPRAZOLE [Interacting]
     Active Substance: DONEPEZIL HYDROCHLORIDE\OMEPRAZOLE\OMEPRAZOLE MAGNESIUM
     Indication: Product used for unknown indication
     Dosage: UNK
     Route: 065
  5. DESLORATADINE [Interacting]
     Active Substance: DESLORATADINE
     Indication: Seasonal allergy
     Dosage: UNK
     Route: 065
  6. DESLORATADINE [Interacting]
     Active Substance: DESLORATADINE
     Indication: Urticaria
  7. DDAVP [Interacting]
     Active Substance: DESMOPRESSIN ACETATE
     Indication: Product used for unknown indication
     Dosage: UNK
     Route: 065
  8. CLARITHROMYCIN [Interacting]
     Active Substance: CLARITHROMYCIN
     Indication: Product used for unknown indication
     Dosage: UNK
     Route: 065
  9. CETIRIZINE [Concomitant]
     Active Substance: CETIRIZINE HYDROCHLORIDE
     Indication: Product used for unknown indication
     Dosage: UNK
     Route: 065

REACTIONS (17)
  - Syncope [Unknown]
  - Dyspnoea [Unknown]
  - Muscle spasms [Unknown]
  - Cardiovascular disorder [Unknown]
  - Mouth swelling [Unknown]
  - Swollen tongue [Unknown]
  - Drug interaction [Unknown]
  - Visual impairment [Unknown]
  - Nausea [Unknown]
  - Migraine [Unknown]
  - Abdominal discomfort [Unknown]
  - Rash [Unknown]
  - Myalgia [Unknown]
  - Diarrhoea [Unknown]
  - Dizziness [Unknown]
  - Arthralgia [Unknown]
  - Hypersensitivity [Unknown]
